FAERS Safety Report 9804536 (Version 1)
Quarter: 2014Q1

REPORT INFORMATION
  Report Type: Spontaneous
  Country: US (occurrence: US)
  Receive Date: 20140108
  Receipt Date: 20140108
  Transmission Date: 20141002
  Serious: No
  Sender: FDA-Public Use
  Company Number: US-009507513-1401USA000724

PATIENT
  Age: 25 Year
  Sex: Female
  Weight: 80.73 kg

DRUGS (1)
  1. IMPLANON [Suspect]
     Indication: CONTRACEPTION
     Dosage: UNK
     Route: 059
     Dates: start: 20130423, end: 20131230

REACTIONS (5)
  - Implant site hypoaesthesia [Recovered/Resolved]
  - Implant site erythema [Recovered/Resolved]
  - Implant site inflammation [Recovered/Resolved]
  - Implant site paraesthesia [Recovered/Resolved]
  - Implant site swelling [Recovered/Resolved]
